FAERS Safety Report 23257040 (Version 1)
Quarter: 2023Q4

REPORT INFORMATION
  Report Type: Spontaneous
  Country: CA (occurrence: CA)
  Receive Date: 20231204
  Receipt Date: 20231204
  Transmission Date: 20240110
  Serious: Yes (Other)
  Sender: FDA-Public Use
  Company Number: CA-ASSERTIO THERAPEUTICS, INC.-CA-2023AST000690

PATIENT
  Age: 57 Year
  Sex: Male

DRUGS (1)
  1. DICLOFENAC POTASSIUM [Suspect]
     Active Substance: DICLOFENAC POTASSIUM
     Indication: Ankylosing spondylitis
     Dosage: UNK
     Route: 065

REACTIONS (2)
  - C-reactive protein increased [Unknown]
  - Drug intolerance [Unknown]
